FAERS Safety Report 7126887-X (Version None)
Quarter: 2010Q4

REPORT INFORMATION
  Report Type: 
  Country: None (occurrence: None)
  Receive Date: 20101129
  Receipt Date: 20091222
  Transmission Date: 20110411
  Serious: No
  Sender: FDA-Public Use
  Company Number: US-PFIZER INC-2009313737

PATIENT

DRUGS (1)
  1. VIAGRA [Suspect]

REACTIONS (1)
  - DYSPNOEA [None]
